FAERS Safety Report 9589842 (Version 1)
Quarter: 2013Q4

REPORT INFORMATION
  Report Type: Spontaneous
  Country: US (occurrence: US)
  Receive Date: 20131003
  Receipt Date: 20131003
  Transmission Date: 20140711
  Serious: No
  Sender: FDA-Public Use
  Company Number: US-AMGEN-USASP2012072718

PATIENT
  Sex: Female
  Weight: 108.84 kg

DRUGS (9)
  1. ENBREL [Suspect]
     Indication: PSORIATIC ARTHROPATHY
     Dosage: 50 MG, QWK
     Route: 058
  2. MULTIVITAMIN                       /00097801/ [Concomitant]
     Dosage: UNK
  3. FOLIC ACID [Concomitant]
     Dosage: UNK
  4. METHOTREXATE [Concomitant]
     Dosage: 2.5 MG, UNK
  5. PREDNISONE [Concomitant]
     Dosage: 1 MG, UNK
  6. OXYBUTYNIN [Concomitant]
     Dosage: 5 MG, UNK
  7. FAMOTIDINE [Concomitant]
     Dosage: 10 MG, UNK
  8. LORATADINE [Concomitant]
     Dosage: 10 MG, UNK
  9. CELEXA                             /01400501/ [Concomitant]
     Dosage: 10 MG, UNK

REACTIONS (1)
  - Pruritus [Unknown]
